FAERS Safety Report 25529672 (Version 2)
Quarter: 2025Q3

REPORT INFORMATION
  Report Type: Spontaneous
  Country: CO (occurrence: CO)
  Receive Date: 20250708
  Receipt Date: 20250811
  Transmission Date: 20251020
  Serious: Yes (Other)
  Sender: PFIZER
  Company Number: CO-TAKEDA-2025TUS060523

PATIENT
  Sex: Female

DRUGS (4)
  1. ADCETRIS [Suspect]
     Active Substance: BRENTUXIMAB VEDOTIN
  2. ADRIAMYCIN [Suspect]
     Active Substance: DOXORUBICIN HYDROCHLORIDE
  3. VINBLASTINE [Suspect]
     Active Substance: VINBLASTINE
  4. DACARBAZINE [Suspect]
     Active Substance: DACARBAZINE

REACTIONS (1)
  - Meningitis aseptic [Unknown]
